FAERS Safety Report 15415096 (Version 3)
Quarter: 2019Q1

REPORT INFORMATION
  Report Type: Spontaneous
  Country: US (occurrence: US)
  Receive Date: 20180921
  Receipt Date: 20190326
  Transmission Date: 20190417
  Serious: Yes (Other)
  Sender: FDA-Public Use
  Company Number: US-SA-2018SA263307

PATIENT
  Age: 52 Year
  Sex: Female

DRUGS (1)
  1. DUPILUMAB [Suspect]
     Active Substance: DUPILUMAB
     Indication: DERMATITIS ATOPIC
     Dosage: 300 MG, QOW
     Route: 058

REACTIONS (4)
  - Cough [Not Recovered/Not Resolved]
  - Eye infection [Not Recovered/Not Resolved]
  - Dacryostenosis acquired [Unknown]
  - Herpes ophthalmic [Not Recovered/Not Resolved]
